FAERS Safety Report 9182253 (Version 1)
Quarter: 2012Q4

REPORT INFORMATION
  Report Type: 
  Country: US (occurrence: US)
  Receive Date: 20121030
  Receipt Date: 20121030
  Transmission Date: 20130627
  Serious: No
  Sender: FDA-Public Use
  Company Number: US-GLAXOSMITHKLINE-A0982163A

PATIENT
  Age: 86 Year
  Sex: Female

DRUGS (4)
  1. SEREVENT [Suspect]
     Indication: PRODUCT USED FOR UNKNOWN INDICATION
     Dosage: 1PUFF Twice per day
     Route: 055
  2. PRO-AIR [Concomitant]
  3. QVAR [Concomitant]
  4. CARDIAC MEDICATION [Concomitant]

REACTIONS (5)
  - Oxygen saturation decreased [Unknown]
  - Drug ineffective [Unknown]
  - Dyspnoea [Unknown]
  - Inhalation therapy [Unknown]
  - Product quality issue [Unknown]
